FAERS Safety Report 21408117 (Version 1)
Quarter: 2022Q4

REPORT INFORMATION
  Report Type: Spontaneous
  Country: DE (occurrence: DE)
  Receive Date: 20221004
  Receipt Date: 20221004
  Transmission Date: 20230112
  Serious: Yes (Hospitalization)
  Sender: FDA-Public Use
  Company Number: DE-ADRED-08038-01

PATIENT
  Age: 81 Year
  Sex: Female
  Weight: 41 kg

DRUGS (12)
  1. BUPRENORPHINE [Interacting]
     Active Substance: BUPRENORPHINE
     Indication: Product used for unknown indication
     Dosage: 10 MCG/H, TUESDAY 1, PATCH TRANSDERMAL, MEDICATION ERRORS
  2. SPIRONOLACTONE [Interacting]
     Active Substance: SPIRONOLACTONE
     Indication: Product used for unknown indication
     Dosage: 1 DOSAGE FORMS DAILY; 50 MG, 1-0-0-0, UNIT DOSE : 1 DF , FREQUENCY : OD
  3. TORSEMIDE [Interacting]
     Active Substance: TORSEMIDE
     Indication: Product used for unknown indication
     Dosage: 1 DOSAGE FORMS DAILY; 10 MG, 1-0-0-0, UNIT DOSE : 1 DF , FREQUENCY : OD, MEDICATION ERRORS
  4. EDOXABAN [Suspect]
     Active Substance: EDOXABAN
     Indication: Product used for unknown indication
     Dosage: 1 DOSAGE FORMS DAILY; 30 MG, 1-0-0-0, UNIT DOSE : 1 DF , FREQUENCY : OD
  5. AMITRIPTYLINE [Interacting]
     Active Substance: AMITRIPTYLINE
     Indication: Product used for unknown indication
     Dosage: 1 DOSAGE FORMS DAILY; 10 MG, 0-0-1-0, UNIT DOSE : 1 DF , FREQUENCY : OD, MEDICATION ERRORS
  6. ATORVASTATIN [Concomitant]
     Active Substance: ATORVASTATIN
     Indication: Product used for unknown indication
     Dosage: 1 DOSAGE FORMS DAILY; 40 MG, 0-0-1-0, UNIT DOSE : 1 DF , FREQUENCY : OD
  7. CARVEDILOL [Concomitant]
     Active Substance: CARVEDILOL
     Indication: Product used for unknown indication
     Dosage: 4 DOSAGE FORMS DAILY; 6.25 MG, 2-0-2-0, UNIT DOSE : 2 DF , FREQUENCY : BD
  8. CHOLECALCIFEROL [Concomitant]
     Active Substance: CHOLECALCIFEROL
     Indication: Product used for unknown indication
     Dosage: 20000 IU, TUESDAY 1, CAPSULES
  9. MOVICOL [Concomitant]
     Active Substance: POLYETHYLENE GLYCOL 3350\POTASSIUM CHLORIDE\SODIUM BICARBONATE\SODIUM CHLORIDE
     Indication: Product used for unknown indication
     Dosage: 1 DOSAGE FORMS DAILY; 1-0-0-0, MOVICOL POUCH, UNIT DOSE : 1 DF , FREQUENCY : OD
  10. SYMBICORT [Concomitant]
     Active Substance: BUDESONIDE\FORMOTEROL FUMARATE DIHYDRATE
     Indication: Product used for unknown indication
     Dosage: 2 DOSAGE FORMS DAILY; 1-0-1-0, DRY POWDER INHALER, SYMBICORT 160 MICROGRAMS/4.5 MICROGRAMS, UNIT DOS
  11. TIOTROPIUM BROMIDE [Concomitant]
     Active Substance: TIOTROPIUM BROMIDE
     Indication: Product used for unknown indication
     Dosage: 1 DOSAGE FORMS DAILY; 18 MCG, 1-0-0-0, UNIT DOSE : 1 DF , FREQUENCY : OD
  12. RAMIPRIL [Concomitant]
     Active Substance: RAMIPRIL
     Indication: Product used for unknown indication
     Dosage: 2 DOSAGE FORMS DAILY; 5 MG, 1-0-1-0, UNIT DOSE : 1 DF , FREQUENCY : BD

REACTIONS (8)
  - Product monitoring error [Unknown]
  - Haematochezia [Unknown]
  - Labelled drug-drug interaction medication error [Unknown]
  - Proctalgia [Unknown]
  - Constipation [Unknown]
  - Haematochezia [Unknown]
  - Product prescribing error [Unknown]
  - Product prescribing error [Unknown]
